APPROVED DRUG PRODUCT: CITANEST FORTE DENTAL
Active Ingredient: EPINEPHRINE BITARTRATE; PRILOCAINE HYDROCHLORIDE
Strength: 0.005MG/ML;4%
Dosage Form/Route: INJECTABLE;INJECTION
Application: N021383 | Product #001 | TE Code: AP
Applicant: DENTSPLY PHARMACEUTICAL INC
Approved: Approved Prior to Jan 1, 1982 | RLD: Yes | RS: Yes | Type: RX